FAERS Safety Report 5760656-8 (Version None)
Quarter: 2008Q2

REPORT INFORMATION
  Report Type: 
  Country: None (occurrence: None)
  Receive Date: 20080605
  Receipt Date: 20080528
  Transmission Date: 20081010
  Serious: Yes (Other)
  Sender: FDA-Public Use
  Company Number: PHHO2007GB03394

PATIENT
  Sex: Female
  Weight: 60 kg

DRUGS (9)
  1. ZOLEDRONIC ACID [Suspect]
     Indication: METASTASES TO BONE
     Dosage: 4 MG
     Route: 042
     Dates: start: 20040708, end: 20050422
  2. EPIRUBICIN [Concomitant]
     Dosage: UNK
     Dates: start: 20040614
  3. FLUOROURACIL [Concomitant]
     Dosage: UNK
     Dates: start: 20040614
  4. CYCLOPHOSPHAMIDE [Concomitant]
     Dosage: UNK
     Dates: start: 20040614
  5. RADIOTHERAPY [Concomitant]
     Dosage: UNK
     Dates: start: 20050105
  6. CALCIUM [Concomitant]
  7. VITAMIN D [Concomitant]
  8. ARIMIDEX [Concomitant]
     Indication: BREAST CANCER
     Dosage: 1 MG, QD
     Route: 048
     Dates: start: 20050709
  9. VENLAFAXINE HCL [Concomitant]

REACTIONS (10)
  - DENTAL ALVEOLAR ANOMALY [None]
  - GINGIVAL INFECTION [None]
  - GINGIVAL PAIN [None]
  - HOT FLUSH [None]
  - HYPERTENSION [None]
  - JOINT STIFFNESS [None]
  - OSTEONECROSIS [None]
  - PAIN IN JAW [None]
  - TENDERNESS [None]
  - TOOTH DEPOSIT [None]
